FAERS Safety Report 8565179-9 (Version None)
Quarter: 2012Q3

REPORT INFORMATION
  Report Type: 
  Country: None (occurrence: None)
  Receive Date: 20120803
  Receipt Date: 20120803
  Transmission Date: 20120928
  Serious: Yes (Other)
  Sender: FDA-Public Use
  Company Number: NO-009507513-2009SP029541

PATIENT

DRUGS (2)
  1. LORATADINE [Suspect]
     Indication: PRODUCT USED FOR UNKNOWN INDICATION
     Route: 048
  2. CLARITIN [Suspect]
     Indication: HYPERSENSITIVITY
     Dosage: 0.5 DF, ONCE
     Route: 048
     Dates: start: 20090408, end: 20090408

REACTIONS (9)
  - HEADACHE [None]
  - DIZZINESS [None]
  - HYPOAESTHESIA [None]
  - MALAISE [None]
  - ASTHMA [None]
  - PARAESTHESIA [None]
  - SPEECH DISORDER [None]
  - HEAD DISCOMFORT [None]
  - PERIPHERAL COLDNESS [None]
